FAERS Safety Report 21897171 (Version 2)
Quarter: 2023Q1

REPORT INFORMATION
  Report Type: Spontaneous
  Country: US (occurrence: US)
  Receive Date: 20230123
  Receipt Date: 20230214
  Transmission Date: 20230418
  Serious: Yes (Other)
  Sender: FDA-Public Use
  Company Number: US-LUPIN PHARMACEUTICALS INC.-2023-00407

PATIENT

DRUGS (4)
  1. DESVENLAFAXINE SUCCINATE [Suspect]
     Active Substance: DESVENLAFAXINE SUCCINATE
     Indication: Autism spectrum disorder
     Dosage: UNK
     Route: 065
  2. DESVENLAFAXINE SUCCINATE [Suspect]
     Active Substance: DESVENLAFAXINE SUCCINATE
     Indication: Depression
  3. DESVENLAFAXINE SUCCINATE [Suspect]
     Active Substance: DESVENLAFAXINE SUCCINATE
     Indication: Anxiety
  4. DESVENLAFAXINE SUCCINATE [Suspect]
     Active Substance: DESVENLAFAXINE SUCCINATE
     Indication: Obsessive-compulsive disorder

REACTIONS (8)
  - Suicidal ideation [Unknown]
  - Hypersomnia [Unknown]
  - Nightmare [Unknown]
  - Insomnia [Unknown]
  - Irritability [Unknown]
  - Product substitution issue [Unknown]
  - Product use in unapproved indication [Unknown]
  - Drug ineffective [Unknown]
